FAERS Safety Report 4286052-0 (Version None)
Quarter: 2004Q1

REPORT INFORMATION
  Report Type: 
  Country: None (occurrence: None)
  Receive Date: 20040202
  Receipt Date: 20040119
  Transmission Date: 20041129
  Serious: Yes (Hospitalization)
  Sender: FDA-Public Use
  Company Number: BE-JNJFOC-20040103454

PATIENT
  Age: 57 Year
  Sex: Female

DRUGS (2)
  1. REMICADE [Suspect]
     Indication: RHEUMATOID ARTHRITIS
     Dosage: 240 MG, 1 IN 8 WK, INTRAVENOUS
     Route: 042
     Dates: start: 20031203
  2. ERYTHROMYCIN [Concomitant]

REACTIONS (4)
  - ARTHROPATHY [None]
  - BLOOD LACTATE DEHYDROGENASE INCREASED [None]
  - CYST [None]
  - RED BLOOD CELL SEDIMENTATION RATE INCREASED [None]
